FAERS Safety Report 5603765-6 (Version None)
Quarter: 2008Q1

REPORT INFORMATION
  Report Type: 
  Country: None (occurrence: None)
  Receive Date: 20080122
  Receipt Date: 20080114
  Transmission Date: 20080703
  Serious: Yes (Other)
  Sender: FDA-Public Use
  Company Number: 2007S1012568

PATIENT
  Age: 60 Year
  Sex: Female

DRUGS (6)
  1. FENTANYL TRANSDERMAL SYSTEM [Suspect]
     Dosage: 25 UG/HR;X1;TRANSDERMAL
     Route: 062
     Dates: start: 20071129, end: 20071129
  2. FENTANYL TRANSDERMAL SYSTEM [Suspect]
     Dosage: 25 UG/HR;X1;TRANSDERMAL
     Route: 062
     Dates: start: 20071129, end: 20071129
  3. ELDERBERRY [Concomitant]
  4. BROMELAIN [Concomitant]
  5. GINKGO BILOBA [Concomitant]
  6. HAWTHORN BERRY [Concomitant]

REACTIONS (11)
  - ABASIA [None]
  - ACCIDENTAL EXPOSURE [None]
  - BALANCE DISORDER [None]
  - DIZZINESS [None]
  - DYSPNOEA [None]
  - DYSSTASIA [None]
  - FALL [None]
  - HEART RATE DECREASED [None]
  - MOVEMENT DISORDER [None]
  - PALLOR [None]
  - PARALYSIS [None]
